FAERS Safety Report 14115352 (Version 1)
Quarter: 2017Q4

REPORT INFORMATION
  Report Type: Spontaneous
  Country: US (occurrence: US)
  Receive Date: 20171023
  Receipt Date: 20171023
  Transmission Date: 20180321
  Serious: No
  Sender: FDA-Public Use
  Company Number: US-ALLERGAN-1678326US

PATIENT
  Sex: Female
  Weight: 108.84 kg

DRUGS (8)
  1. LINZESS [Suspect]
     Active Substance: LINACLOTIDE
     Indication: CONSTIPATION
     Dosage: 145 ?G, UNK
     Route: 048
     Dates: start: 20161010
  2. CEFPODOXIME [Concomitant]
     Active Substance: CEFPODOXIME
     Indication: DIVERTICULITIS
     Dosage: UNK
     Route: 048
  3. MIRALAX [Concomitant]
     Active Substance: POLYETHYLENE GLYCOL 3350
     Indication: CONSTIPATION
     Dosage: UNK
     Route: 048
  4. DETROL [Concomitant]
     Active Substance: TOLTERODINE TARTRATE
     Indication: HYPERTONIC BLADDER
     Dosage: UNK
     Route: 048
  5. CEPHALEXIN. [Concomitant]
     Active Substance: CEPHALEXIN
     Indication: DIVERTICULITIS
     Dosage: UNK
     Route: 048
  6. PEPCID [Concomitant]
     Active Substance: FAMOTIDINE
     Indication: GASTROOESOPHAGEAL REFLUX DISEASE
     Dosage: UNK
     Route: 048
  7. METAMUCIL [Concomitant]
     Active Substance: PLANTAGO SEED
     Indication: CONSTIPATION
     Dosage: UNK UNK, QD
     Route: 048
  8. NEXIUM [Concomitant]
     Active Substance: ESOMEPRAZOLE MAGNESIUM
     Indication: GASTROOESOPHAGEAL REFLUX DISEASE
     Dosage: UNK UNK, QD
     Route: 048

REACTIONS (2)
  - Abnormal faeces [Not Recovered/Not Resolved]
  - Faeces discoloured [Not Recovered/Not Resolved]
